FAERS Safety Report 12976704 (Version 4)
Quarter: 2017Q2

REPORT INFORMATION
  Report Type: Report from Study
  Country: CN (occurrence: CN)
  Receive Date: 20161128
  Receipt Date: 20170629
  Transmission Date: 20170830
  Serious: Yes (Other)
  Sender: FDA-Public Use
  Company Number: PHHO2016CN017017

PATIENT
  Age: 45 Year
  Sex: Female
  Weight: 57.5 kg

DRUGS (9)
  1. ENTECAVIR. [Concomitant]
     Active Substance: ENTECAVIR
     Indication: HEPATITIS B
     Dosage: 1 DF, QD
     Route: 048
     Dates: start: 20160929
  2. TALCID [Concomitant]
     Active Substance: HYDROTALCITE
     Indication: APPETITE DISORDER
     Dosage: 1 DF, TID
     Route: 048
     Dates: start: 20161205
  3. CARBOPLATIN. [Concomitant]
     Active Substance: CARBOPLATIN
     Indication: PRODUCT USED FOR UNKNOWN INDICATION
     Dosage: 230 MG, QW
     Route: 042
     Dates: start: 20160929, end: 20160929
  4. CARBOPLATIN. [Concomitant]
     Active Substance: CARBOPLATIN
     Dosage: 200 MG, QW
     Route: 042
     Dates: start: 20161013
  5. HERCEPTIN [Concomitant]
     Active Substance: TRASTUZUMAB
     Indication: TUMOUR TREATING FIELDS THERAPY
     Dosage: 480 MG, (8 MG/KG FOR THE FIRST TIME, THEN 6 MG/KG Q3W)
     Route: 042
     Dates: start: 20160928
  6. TYKERB [Suspect]
     Active Substance: LAPATINIB DITOSYLATE
     Indication: BREAST CANCER
     Dosage: 1500 MG, QD
     Route: 048
     Dates: start: 20160929, end: 20161008
  7. OMEPRAZOLE. [Concomitant]
     Active Substance: OMEPRAZOLE
     Indication: DYSPEPSIA
     Dosage: 1 DF, BID
     Route: 048
     Dates: start: 20160929
  8. TYKERB [Suspect]
     Active Substance: LAPATINIB DITOSYLATE
     Dosage: 15000 MG, BID
     Route: 048
     Dates: start: 20161013
  9. PACLITAXEL. [Concomitant]
     Active Substance: PACLITAXEL
     Indication: PRODUCT USED FOR UNKNOWN INDICATION
     Dosage: 130 MG, QW
     Route: 042
     Dates: start: 20160929

REACTIONS (14)
  - Haematochezia [Recovered/Resolved]
  - Headache [Recovered/Resolved]
  - Leukopenia [Recovered/Resolved]
  - Mouth ulceration [Recovered/Resolved]
  - White blood cell count decreased [Recovered/Resolved]
  - Upper respiratory tract infection [Recovered/Resolved]
  - Neutrophil count decreased [Recovered/Resolved]
  - Haematochezia [Recovered/Resolved]
  - Haematochezia [Recovered/Resolved]
  - Nausea [Recovered/Resolved]
  - Dyspepsia [Recovering/Resolving]
  - Diarrhoea [Recovering/Resolving]
  - Toothache [Recovered/Resolved]
  - Viral upper respiratory tract infection [Recovering/Resolving]

NARRATIVE: CASE EVENT DATE: 20161006
